FAERS Safety Report 19447037 (Version 1)
Quarter: 2021Q2

REPORT INFORMATION
  Report Type: Spontaneous
  Country: US (occurrence: US)
  Receive Date: 20210622
  Receipt Date: 20210622
  Transmission Date: 20210717
  Serious: No
  Sender: FDA-Public Use
  Company Number: US-HIKMA PHARMACEUTICALS USA INC.-US-H14001-21-00575

PATIENT
  Age: 44 Year
  Sex: Male

DRUGS (3)
  1. ZITHROMAX [Concomitant]
     Active Substance: AZITHROMYCIN DIHYDRATE
     Indication: PRODUCT USED FOR UNKNOWN INDICATION
     Dosage: UNKNOWN
     Route: 065
     Dates: start: 20210119
  2. FLUTICASONE. [Suspect]
     Active Substance: FLUTICASONE
     Indication: PARANASAL SINUS DISCOMFORT
     Dosage: IN EACH NOSTRIL
     Route: 045
     Dates: start: 20210119, end: 20210119
  3. FLUTICASONE. [Suspect]
     Active Substance: FLUTICASONE
     Indication: SINUS CONGESTION

REACTIONS (2)
  - Off label use [Not Recovered/Not Resolved]
  - Vision blurred [Not Recovered/Not Resolved]
